FAERS Safety Report 16259124 (Version 2)
Quarter: 2019Q2

REPORT INFORMATION
  Report Type: Spontaneous
  Country: IT (occurrence: IT)
  Receive Date: 20190501
  Receipt Date: 20190606
  Transmission Date: 20190711
  Serious: Yes (Life-Threatening)
  Sender: FDA-Public Use
  Company Number: IT-TEVA-2019-IT-1043465

PATIENT
  Age: 14 Year
  Sex: Male
  Weight: 52 kg

DRUGS (8)
  1. ONDANSETRON HYDROCHLORIDE. [Suspect]
     Active Substance: ONDANSETRON HYDROCHLORIDE
     Indication: VOMITING
     Route: 040
     Dates: start: 20190401, end: 20190409
  2. TAZOCIN [Concomitant]
     Active Substance: PIPERACILLIN SODIUM\TAZOBACTAM SODIUM
  3. MEROPENEM. [Concomitant]
     Active Substance: MEROPENEM
  4. FOSCAVIR [Suspect]
     Active Substance: FOSCARNET SODIUM
     Indication: CYTOMEGALOVIRUS INFECTION
     Dosage: 9 GRAM DAILY;
     Route: 041
     Dates: start: 20190401, end: 20190410
  5. TARGOSID [Concomitant]
     Active Substance: TEICOPLANIN
  6. AMIKACIN SULFATE. [Concomitant]
     Active Substance: AMIKACIN SULFATE
  7. BACTRIM [Concomitant]
     Active Substance: SULFAMETHOXAZOLE\TRIMETHOPRIM
  8. POSACONAZOLE [Concomitant]
     Active Substance: POSACONAZOLE

REACTIONS (2)
  - Ventricular fibrillation [Recovered/Resolved]
  - Cardiac arrest [Recovered/Resolved]

NARRATIVE: CASE EVENT DATE: 20190410
